FAERS Safety Report 20493312 (Version 1)
Quarter: 2022Q1

REPORT INFORMATION
  Report Type: Report from Study
  Country: PH (occurrence: PH)
  Receive Date: 20220220
  Receipt Date: 20220220
  Transmission Date: 20220423
  Serious: Yes (Death, Other)
  Sender: FDA-Public Use
  Company Number: PH-BoehringerIngelheim-2022-BI-154615

PATIENT
  Age: 72 Year
  Sex: Female

DRUGS (2)
  1. GILOTRIF [Suspect]
     Active Substance: AFATINIB
     Indication: Non-small cell lung cancer
     Dosage: 30 MG
     Route: 048
     Dates: start: 20220204, end: 20220211
  2. GILOTRIF [Suspect]
     Active Substance: AFATINIB
     Indication: Metastases to central nervous system

REACTIONS (2)
  - Asthenia [Fatal]
  - Acute respiratory distress syndrome [Fatal]

NARRATIVE: CASE EVENT DATE: 20220205
